FAERS Safety Report 16084404 (Version 1)
Quarter: 2019Q2

REPORT INFORMATION
  Report Type: Spontaneous
  Country: US (occurrence: US)
  Receive Date: 20190317
  Receipt Date: 20190317
  Transmission Date: 20190711
  Serious: Yes (Other)
  Sender: FDA-Public Use
  Company Number: None

PATIENT
  Age: 52 Year
  Sex: Female
  Weight: 117 kg

DRUGS (1)
  1. CONTRAVE [Suspect]
     Active Substance: BUPROPION HYDROCHLORIDE\NALTREXONE HYDROCHLORIDE
     Indication: OBESITY
     Dosage: ?          QUANTITY:2 TABLET(S);OTHER ROUTE:BY MOUTH 2 IN THE MORNING, BE AT NIGHT?
     Dates: start: 20190201, end: 20190317

REACTIONS (4)
  - Urticaria [None]
  - Product communication issue [None]
  - Lip swelling [None]
  - Incorrect dose administered [None]

NARRATIVE: CASE EVENT DATE: 20190317
